FAERS Safety Report 6685269-5 (Version None)
Quarter: 2010Q2

REPORT INFORMATION
  Report Type: 
  Country: None (occurrence: None)
  Receive Date: 20100416
  Receipt Date: 20100407
  Transmission Date: 20101027
  Serious: Yes (Other)
  Sender: FDA-Public Use
  Company Number: GB-GENENTECH-300346

PATIENT
  Sex: Male
  Weight: 65 kg

DRUGS (7)
  1. RITUXIMAB [Suspect]
     Indication: B-CELL LYMPHOMA
     Dosage: 375 MG/M2, Q3W
     Route: 042
     Dates: start: 20090219, end: 20090918
  2. CHLORAMBUCIL [Suspect]
     Indication: B-CELL LYMPHOMA
     Dosage: 10 MG, Q3W
     Route: 048
     Dates: start: 20090219, end: 20090918
  3. PREDNISOLONE [Suspect]
     Indication: B-CELL LYMPHOMA
     Dosage: UNK
     Route: 065
  4. SIMVASTATIN [Concomitant]
     Indication: BLOOD CHOLESTEROL INCREASED
     Dosage: 40 MG, UNK
     Route: 048
  5. ATENOLOL [Concomitant]
     Indication: HYPERTENSION
     Dosage: 25 MG, UNK
     Route: 048
  6. BENDROFLUMETHIAZIDE [Concomitant]
     Indication: DRUG USE FOR UNKNOWN INDICATION
     Dosage: 2.5 MG, UNK
     Route: 048
  7. WARFARIN [Concomitant]
     Indication: PROPHYLAXIS
     Dosage: 1 MG, UNK
     Route: 048

REACTIONS (2)
  - RASH [None]
  - SKIN DISORDER [None]
